FAERS Safety Report 21137108 (Version 1)
Quarter: 2022Q3

REPORT INFORMATION
  Report Type: Spontaneous
  Country: TW (occurrence: TW)
  Receive Date: 20220727
  Receipt Date: 20220727
  Transmission Date: 20221026
  Serious: Yes (Death)
  Sender: FDA-Public Use
  Company Number: TW-PFIZER INC-PV202200030473

PATIENT
  Age: 47 Year
  Sex: Male

DRUGS (1)
  1. BENEFIX [Suspect]
     Active Substance: COAGULATION FACTOR IX RECOMBINANT HUMAN\ISOPROPYL ALCOHOL
     Indication: Spontaneous haemorrhage
     Dosage: 4000 IU, TWICE A WEEK
     Route: 042

REACTIONS (1)
  - Brain stem stroke [Fatal]

NARRATIVE: CASE EVENT DATE: 20220718
